FAERS Safety Report 14674793 (Version 1)
Quarter: 2018Q1

REPORT INFORMATION
  Report Type: Spontaneous
  Country: US (occurrence: US)
  Receive Date: 20180323
  Receipt Date: 20180323
  Transmission Date: 20180509
  Serious: No
  Sender: FDA-Public Use
  Company Number: US-HORIZON-DUE-0066-2018

PATIENT
  Age: 71 Year
  Sex: Female

DRUGS (1)
  1. DUEXIS [Suspect]
     Active Substance: FAMOTIDINE\IBUPROFEN
     Indication: OSTEOARTHRITIS
     Dosage: PRN

REACTIONS (3)
  - Intentional product misuse [Unknown]
  - Arthralgia [Unknown]
  - Product supply issue [Not Recovered/Not Resolved]
